FAERS Safety Report 13876370 (Version 1)
Quarter: 2017Q3

REPORT INFORMATION
  Report Type: Report from Study
  Country: CA (occurrence: CA)
  Receive Date: 20170817
  Receipt Date: 20170817
  Transmission Date: 20171127
  Serious: Yes (Other)
  Sender: FDA-Public Use
  Company Number: CA-AMGEN-CANSL2017074701

PATIENT
  Age: 66 Year
  Sex: Female
  Weight: 66.6 kg

DRUGS (7)
  1. ENBREL [Suspect]
     Active Substance: ETANERCEPT
     Indication: PSORIATIC ARTHROPATHY
     Dosage: 50 MG, QWK
     Route: 058
     Dates: start: 20170512, end: 20170710
  2. CORTIZONE 10 [Concomitant]
     Active Substance: HYDROCORTISONE
  3. METHOTREXATE. [Suspect]
     Active Substance: METHOTREXATE
     Dosage: 25 MG, QWK
     Route: 058
  4. HYDROXYCHLOROQUINE [Suspect]
     Active Substance: HYDROXYCHLOROQUINE
     Indication: PRODUCT USED FOR UNKNOWN INDICATION
     Dosage: 400 MG, QWK
     Route: 065
  5. ENBREL [Suspect]
     Active Substance: ETANERCEPT
     Dosage: 50 MG, QWK
     Route: 058
     Dates: start: 20170731
  6. CHLOROQUINE. [Suspect]
     Active Substance: CHLOROQUINE
     Indication: PRODUCT USED FOR UNKNOWN INDICATION
     Dosage: 400 MG, QWK
     Route: 065
  7. METHOTREXATE. [Suspect]
     Active Substance: METHOTREXATE
     Indication: PRODUCT USED FOR UNKNOWN INDICATION
     Dosage: 10 MG, QD
     Route: 065

REACTIONS (8)
  - Gastrointestinal disorder [Unknown]
  - Nausea [Unknown]
  - Urticaria [Not Recovered/Not Resolved]
  - Bursitis [Unknown]
  - Dizziness [Unknown]
  - Irritability [Not Recovered/Not Resolved]
  - Rash [Recovered/Resolved]
  - Headache [Unknown]

NARRATIVE: CASE EVENT DATE: 20170512
